FAERS Safety Report 21312533 (Version 1)
Quarter: 2022Q3

REPORT INFORMATION
  Report Type: Spontaneous
  Country: US (occurrence: None)
  Receive Date: 20220909
  Receipt Date: 20220909
  Transmission Date: 20221026
  Serious: No
  Sender: FDA-Public Use
  Company Number: US-ARIS GLOBAL-202206-1196

PATIENT
  Sex: Male

DRUGS (10)
  1. OXERVATE [Suspect]
     Active Substance: CENEGERMIN-BKBJ
     Indication: Neurotrophic keratopathy
     Route: 047
     Dates: start: 20220620
  2. UPNEEQ [Concomitant]
     Active Substance: OXYMETAZOLINE HYDROCHLORIDE
  3. VITAMIN C [Concomitant]
     Active Substance: ASCORBIC ACID
  4. VITAMIN B12 ACTIVE [Concomitant]
  5. ZYLET [Concomitant]
     Active Substance: LOTEPREDNOL ETABONATE\TOBRAMYCIN
     Dosage: 0.3%-0.5% DROPS SUSPENSION
  6. ZIRGAN [Concomitant]
     Active Substance: GANCICLOVIR
     Dosage: GRAM
  7. MURO-128 [Concomitant]
  8. ELIQUIS [Concomitant]
     Active Substance: APIXABAN
  9. DIGOXIN [Concomitant]
     Active Substance: DIGOXIN
  10. ACYCLOVIR [Concomitant]
     Active Substance: ACYCLOVIR

REACTIONS (4)
  - Eye pain [Unknown]
  - Ocular discomfort [Unknown]
  - Foreign body sensation in eyes [Unknown]
  - Lacrimation increased [Unknown]
